FAERS Safety Report 14302898 (Version 1)
Quarter: 2017Q4

REPORT INFORMATION
  Report Type: Report from Study
  Country: AR (occurrence: AR)
  Receive Date: 20171219
  Receipt Date: 20171219
  Transmission Date: 20180321
  Serious: Yes (Other)
  Sender: FDA-Public Use
  Company Number: PHHY2017AR188752

PATIENT
  Sex: Female

DRUGS (3)
  1. VENORUTON [Suspect]
     Active Substance: TROXERUTIN
     Indication: VARICOSE VEIN
     Dosage: 1 DF, QD  (DID NOT KNOW IF WAS 100) (AS REPORTED)
     Route: 065
  2. DIOVAN [Suspect]
     Active Substance: VALSARTAN
     Indication: HYPERTENSION
     Dosage: 80 OT, (TOOK IT ON MONDAYS, WEDNESDAYS AND FRIDAYS)
     Route: 065
  3. DIOVAN [Suspect]
     Active Substance: VALSARTAN
     Dosage: 80 OT, QD
     Route: 065

REACTIONS (14)
  - Nervousness [Unknown]
  - Crying [Unknown]
  - Varicose vein [Unknown]
  - Blood pressure increased [Unknown]
  - Blood pressure fluctuation [Unknown]
  - Inappropriate schedule of drug administration [Unknown]
  - Osteoarthritis [Unknown]
  - Fatigue [Unknown]
  - Hip fracture [Unknown]
  - Gait disturbance [Unknown]
  - Headache [Unknown]
  - Condition aggravated [Unknown]
  - Blood pressure decreased [Unknown]
  - Pain [Unknown]
